FAERS Safety Report 8494118-4 (Version None)
Quarter: 2012Q3

REPORT INFORMATION
  Report Type: 
  Country: None (occurrence: None)
  Receive Date: 20120702
  Receipt Date: 20120702
  Transmission Date: 20120928
  Serious: No
  Sender: FDA-Public Use
  Company Number: None

PATIENT
  Age: 79 Year
  Sex: Female
  Weight: 70.3075 kg

DRUGS (1)
  1. CLINDAMYCIN HCL [Suspect]
     Indication: TOOTH EXTRACTION
     Dosage: 300MG 1 CAP TID ORAL
     Route: 048
     Dates: start: 20120312, end: 20120315

REACTIONS (3)
  - ARTHRALGIA [None]
  - RASH [None]
  - ABDOMINAL PAIN [None]
